FAERS Safety Report 7885449-7 (Version None)
Quarter: 2011Q4

REPORT INFORMATION
  Report Type: 
  Country: None (occurrence: None)
  Receive Date: 20111102
  Receipt Date: 20111020
  Transmission Date: 20120403
  Serious: Yes (Hospitalization, Other)
  Sender: FDA-Public Use
  Company Number: US-ROCHE-783762

PATIENT
  Sex: Female
  Weight: 50.848 kg

DRUGS (3)
  1. BIRTH CONTROL PILLS NOS [Concomitant]
     Route: 065
  2. ACCUTANE [Suspect]
     Route: 065
     Dates: start: 19980301, end: 19980901
  3. ACCUTANE [Suspect]
     Indication: ACNE
     Route: 065
     Dates: start: 20020101, end: 20030101

REACTIONS (6)
  - INFLAMMATORY BOWEL DISEASE [None]
  - CROHN'S DISEASE [None]
  - INTESTINAL HAEMORRHAGE [None]
  - STRESS [None]
  - INTESTINAL OBSTRUCTION [None]
  - IRRITABLE BOWEL SYNDROME [None]
